FAERS Safety Report 5114117-X (Version None)
Quarter: 2006Q3

REPORT INFORMATION
  Report Type: 
  Country: None (occurrence: None)
  Receive Date: 20060925
  Receipt Date: 20060919
  Transmission Date: 20061208
  Serious: Yes (Hospitalization, Other)
  Sender: FDA-Public Use
  Company Number: GB-GLAXOSMITHKLINE-B0439256A

PATIENT
  Age: 44 Year
  Sex: Male

DRUGS (7)
  1. PAROXETINE HCL [Suspect]
     Indication: DEPRESSION
     Dosage: 20MG PER DAY
     Route: 048
  2. DICLOFENAC SODIUM [Suspect]
     Dosage: 200MG PER DAY
     Route: 048
     Dates: end: 20060830
  3. BECLOMETHASONE DIPROPIONATE [Concomitant]
     Indication: ASTHMA
     Dosage: 200MCG TWICE PER DAY
     Route: 055
  4. LEVOCETIRIZINE [Concomitant]
     Dosage: 5MG PER DAY
     Route: 048
  5. METHOCARBAMOL [Concomitant]
     Dosage: 750MG THREE TIMES PER DAY
     Route: 048
  6. RANITIDINE [Concomitant]
     Indication: DYSPEPSIA
     Dosage: 150MG TWICE PER DAY
     Route: 048
  7. ALBUTEROL SPIROS [Concomitant]
     Indication: ASTHMA
     Dosage: 100MG TWICE PER DAY
     Route: 055

REACTIONS (2)
  - DUODENAL ULCER HAEMORRHAGE [None]
  - GASTRIC PH DECREASED [None]
